FAERS Safety Report 20609463 (Version 1)
Quarter: 2022Q1

REPORT INFORMATION
  Report Type: Spontaneous
  Country: GB (occurrence: GB)
  Receive Date: 20220318
  Receipt Date: 20220318
  Transmission Date: 20220424
  Serious: Yes (Congenital Anomaly, Other)
  Sender: FDA-Public Use
  Company Number: GB-ABBVIE-22K-167-4321587-00

PATIENT
  Sex: Female

DRUGS (1)
  1. VALPROATE SODIUM [Suspect]
     Active Substance: VALPROATE SODIUM
     Indication: Maternal exposure timing unspecified
     Route: 064

REACTIONS (10)
  - Gross motor delay [Unknown]
  - Learning disability [Unknown]
  - Mental disorder [Unknown]
  - Developmental delay [Unknown]
  - Strabismus [Unknown]
  - Reduced facial expression [Unknown]
  - Ear disorder [Unknown]
  - Speech disorder developmental [Unknown]
  - Physical disability [Unknown]
  - Foetal exposure during pregnancy [Unknown]
